FAERS Safety Report 4663149-4 (Version None)
Quarter: 2005Q3

REPORT INFORMATION
  Report Type: 
  Country: None (occurrence: None)
  Receive Date: 20050513
  Receipt Date: 20050308
  Transmission Date: 20060218
  Serious: Yes (Other)
  Sender: FDA-Public Use
  Company Number: 7979

PATIENT
  Age: 36 Year
  Sex: Female
  Weight: 81.6475 kg

DRUGS (3)
  1. SEPTOCAINE [Suspect]
     Indication: ANAESTHESIA
     Dosage: 2 CARTRID INFILTRATION/NERV.BLK.
  2. MARCAINE HYDROCHLORIDE W/ EPINEPHRINE [Suspect]
     Indication: ANAESTHESIA
     Dosage: 1 CARTRID. INFILTRATIO/NERV. BLK.
  3. TRI-LEVLEN [Concomitant]

REACTIONS (3)
  - ALOPECIA [None]
  - HYPOAESTHESIA ORAL [None]
  - HYPOGEUSIA [None]
